FAERS Safety Report 9945865 (Version 1)
Quarter: 2014Q1

REPORT INFORMATION
  Report Type: Spontaneous
  Country: US (occurrence: US)
  Receive Date: 20140303
  Receipt Date: 20140303
  Transmission Date: 20141002
  Serious: No
  Sender: FDA-Public Use
  Company Number: US-AMGEN-USASP2013070978

PATIENT
  Age: 54 Year
  Sex: Female
  Weight: 82.09 kg

DRUGS (13)
  1. ENBREL [Suspect]
     Indication: PRODUCT USED FOR UNKNOWN INDICATION
     Dosage: 50 MG, QWK
     Route: 058
  2. KEPPRA [Concomitant]
     Dosage: 250 MG, UNK
  3. MELOXICAM [Concomitant]
     Dosage: 7.5 MG, UNK
  4. FISH OIL                           /00492901/ [Concomitant]
     Dosage: UNK
  5. AMLODIPINE [Concomitant]
     Dosage: 10 MG, UNK
  6. TRIAMTERENE AND HYDROCHLOROTHIAZID [Concomitant]
     Dosage: UNK 25 TO 50 MG
  7. PRILOSEC                           /00661201/ [Concomitant]
     Dosage: 20 MG, UNK
  8. CLONIDINE [Concomitant]
     Dosage: 0.1 MG, UNK
  9. NASALCROM [Concomitant]
     Dosage: UNK, 5.2/ACT
  10. ALBUTEROL                          /00139501/ [Concomitant]
     Dosage: 90 MUG, UNK
  11. TRAMADOL HCL [Concomitant]
     Dosage: 150 MG, UNK
  12. MUCINEX DM [Concomitant]
     Dosage: 60-1200
  13. NIACIN [Concomitant]
     Dosage: 400 MG, UNK

REACTIONS (2)
  - Arthritis [Unknown]
  - Fibromyalgia [Unknown]
